FAERS Safety Report 7595892-1 (Version None)
Quarter: 2011Q3

REPORT INFORMATION
  Report Type: 
  Country: None (occurrence: None)
  Receive Date: 20110707
  Receipt Date: 20110630
  Transmission Date: 20111222
  Serious: Yes (Other)
  Sender: FDA-Public Use
  Company Number: PHHY2010NL89643

PATIENT
  Age: 51 Year
  Sex: Male

DRUGS (4)
  1. DEXAMETHASONE [Suspect]
     Dosage: 1 MG, UNK
  2. PREDNISOLONE [Suspect]
     Indication: VASCULITIS
     Route: 014
  3. FLUTICASONE PROPIONATE [Suspect]
     Route: 061
  4. PREDNISOLONE [Suspect]
     Route: 048

REACTIONS (4)
  - SKIN BURNING SENSATION [None]
  - HYPERSENSITIVITY [None]
  - DERMATITIS CONTACT [None]
  - RASH ERYTHEMATOUS [None]
